FAERS Safety Report 9511743 (Version 2)
Quarter: 2013Q3

REPORT INFORMATION
  Report Type: Report from Study
  Country: US (occurrence: US)
  Receive Date: 20130910
  Receipt Date: 20130910
  Transmission Date: 20140515
  Serious: Yes (Hospitalization)
  Sender: FDA-Public Use
  Company Number: US-ASTELLAS-2013EU005337

PATIENT
  Age: 66 Year
  Sex: Male
  Weight: 106.9 kg

DRUGS (50)
  1. BLINDED FIDAXOMICIN [Suspect]
     Indication: PROPHYLAXIS
     Dosage: 1 TABLET, QD
     Route: 048
     Dates: start: 20130417, end: 20130509
  2. TACROLIMUS SYSTEMIC [Suspect]
     Indication: PROPHYLAXIS AGAINST GRAFT VERSUS HOST DISEASE
     Dosage: 0.5-2-MG-QD
     Route: 042
     Dates: start: 20130420
  3. TACROLIMUS SYSTEMIC [Suspect]
     Indication: GRAFT VERSUS HOST DISEASE
     Dosage: 1-2-MG-BID
     Route: 048
     Dates: start: 20130507
  4. AMLODIPINE [Concomitant]
     Indication: HYPERTENSION
     Dosage: 5-10 MG, QD
     Route: 048
     Dates: start: 20130425
  5. HYDROMORPHONE [Concomitant]
     Indication: PAIN
     Dosage: 1-2-MG-PRN
     Route: 042
     Dates: start: 20130423
  6. LOPERAMIDE [Concomitant]
     Indication: PROPHYLAXIS AGAINST DIARRHOEA
     Dosage: 2-4-MG-PRN
     Route: 048
     Dates: start: 20130425
  7. ARTIFICIAL TEARS [Concomitant]
     Indication: PROPHYLAXIS
     Dosage: 1-GTT-Q6H
     Route: 047
     Dates: start: 20130415
  8. MAGNESIUM SULFATE [Concomitant]
     Indication: HYPOMAGNESAEMIA
     Dosage: 2-6-G-QD
     Route: 042
     Dates: start: 20130422
  9. MAGNESIUM SULFATE [Concomitant]
     Dosage: 24-48-MG-PRN
     Route: 042
     Dates: start: 20130514, end: 20130626
  10. MULTIPLE VITAMINS [Concomitant]
     Indication: VITAMIN SUPPLEMENTATION
     Dosage: 1-TABLET-QD
     Route: 048
     Dates: start: 20130415
  11. OLMESARTAN MEDOXOMIL [Concomitant]
     Indication: HYPERTENSION
     Dosage: 20-MG-QD
     Route: 048
     Dates: start: 20130415
  12. ONDANSETRON [Concomitant]
     Indication: PROPHYLAXIS OF NAUSEA AND VOMITING
     Dosage: 4-16-MG-PRN
     Route: 042
     Dates: start: 20130410
  13. ONDANSETRON [Concomitant]
     Indication: PREMEDICATION
  14. OXYCODONE [Concomitant]
     Indication: PAIN
     Dosage: 5 MG, PRN
     Route: 048
     Dates: start: 20130415
  15. PHYTONADIONE [Concomitant]
     Indication: HAEMORRHAGE PROPHYLAXIS
     Dosage: 10-MG-EVERY MONDAY
     Route: 048
     Dates: start: 20130415
  16. ATORVASTATIN CALCIUM [Concomitant]
     Indication: HYPERLIPIDAEMIA
     Dosage: 20 MG, QD
     Route: 048
     Dates: start: 20130415
  17. POLYETHYLENE GLYCOL [Concomitant]
     Indication: CONSTIPATION PROPHYLAXIS
     Dosage: 17-527-G-QD
     Route: 048
     Dates: start: 20130412
  18. PROMETHAZINE [Concomitant]
     Indication: NAUSEA
     Dosage: 12.5 MG, QD
     Route: 042
     Dates: start: 20130418
  19. SODIUM CHLORIDE [Concomitant]
     Indication: FLUID REPLACEMENT
     Dosage: 10-1000-ML-PRN
     Route: 042
     Dates: start: 20130410
  20. SUCRALFATE [Concomitant]
     Indication: PROPHYLAXIS
     Dosage: 1000 MG, PRN
     Route: 048
     Dates: start: 20130428
  21. TRIAMCINOLONE [Concomitant]
     Indication: RASH
     Dosage: 1-APPLICATION-BID
     Route: 061
     Dates: start: 20130421
  22. URSODIOL [Concomitant]
     Indication: HEPATIC ENZYME INCREASED
     Dosage: 300 MG, TID
     Route: 048
     Dates: start: 20130429
  23. VALACYCLOVIR [Concomitant]
     Indication: ANTIVIRAL PROPHYLAXIS
     Dosage: 500 MG, QD
     Route: 048
     Dates: start: 20130421
  24. BENZONATATE [Concomitant]
     Indication: COUGH
     Dosage: 100 MG, TID
     Route: 048
     Dates: start: 20130428
  25. WHITE PETROLATUM [Concomitant]
     Indication: PROPHYLAXIS
     Dosage: 91 G, PRN
     Route: 061
     Dates: start: 20130415
  26. WITCH HAZEL GLYCERIN [Concomitant]
     Indication: HAEMORRHOIDS
     Dosage: 1-PAD-PRN
     Route: 061
     Dates: start: 20130428
  27. ZOLPIDEM TARTRATE [Concomitant]
     Indication: INSOMNIA
     Dosage: 5 MG, PRN
     Route: 048
     Dates: start: 20130417
  28. CASPOFUNGIN ACETATE [Concomitant]
     Indication: ANTIFUNGAL PROPHYLAXIS
     Dosage: 50-70-MG-QD
     Route: 042
     Dates: start: 20130425
  29. CEFEPIME [Concomitant]
     Indication: ANTIBIOTIC PROPHYLAXIS
     Dosage: 2-G-Q8H
     Route: 042
     Dates: start: 20130426
  30. FUROSEMIDE [Concomitant]
     Indication: FLUID OVERLOAD
     Dosage: 20-40-MG-PRN
     Route: 042
     Dates: start: 20130423, end: 20130615
  31. POLYVIDONE W/POLYVINYL ALCOHOL [Concomitant]
     Indication: PROPHYLAXIS
     Dosage: 1-GHS-PRN
     Route: 050
     Dates: start: 20130422
  32. CARBOXYMETHYLCELLULOSE SODIUM [Concomitant]
     Indication: PROPHYLAXIS
     Dosage: 1-GHS-PRN
     Route: 050
     Dates: start: 20130426
  33. CLOTRIMAZOLE [Concomitant]
     Indication: MUCOSAL INFLAMMATION
     Dosage: 10-MG-PRN
     Route: 048
     Dates: start: 20130501
  34. ZINC OXIDE [Concomitant]
     Indication: GRAFT VERSUS HOST DISEASE IN SKIN
     Dosage: 1-APPL-PRN
     Route: 061
     Dates: start: 20130507
  35. HYDROCORTISONE [Concomitant]
     Indication: GRAFT VERSUS HOST DISEASE IN SKIN
     Dosage: 1-APPL-PRN
     Route: 061
     Dates: start: 20130509, end: 20130627
  36. HYDROXIZINE [Concomitant]
     Indication: GRAFT VERSUS HOST DISEASE IN SKIN
     Dosage: 25 MG, PRN
     Route: 048
     Dates: start: 20130509
  37. PREDNISONE [Concomitant]
     Indication: GRAFT VERSUS HOST DISEASE IN SKIN
     Dosage: 60-100-MG-BID
     Route: 048
     Dates: start: 20130510
  38. LEVOFLOXACIN [Concomitant]
     Indication: ANTIBIOTIC PROPHYLAXIS
     Dosage: 500-MG-QD
     Route: 048
     Dates: start: 20130415, end: 20130627
  39. LEVOFLOXACIN [Concomitant]
     Dosage: 500-MG-QD
     Route: 048
     Dates: start: 20130606, end: 20130616
  40. MAGNESIUM OXIDE [Concomitant]
     Indication: HYPOMAGNESAEMIA
     Dosage: 500-MG-TID
     Route: 048
     Dates: start: 20130606
  41. DIPHENHYDRAMINE [Concomitant]
     Indication: PRURITUS
     Dosage: 12.5-25-MG-PRN
     Route: 048
     Dates: start: 20130605
  42. VALGANCICLOVIR [Concomitant]
     Indication: CYTOMEGALOVIRUS INFECTION
     Dosage: 450-MG-QD
     Route: 048
     Dates: start: 20130529, end: 20130612
  43. CALCIUM GLUCONATE [Concomitant]
     Indication: PREMEDICATION
     Dosage: 1-G-PRN
     Route: 042
     Dates: start: 20130529
  44. MIDAZOLAM [Concomitant]
     Indication: ANXIETY
     Dosage: 5-MG-PRN
     Route: 048
     Dates: start: 20130529
  45. GANCICLOVIR [Concomitant]
     Indication: CYTOMEGALOVIRUS INFECTION
     Dosage: 450 MG, ONCE
     Route: 042
     Dates: start: 20130530, end: 20130530
  46. DIPHENOXYLATE W/ATROPINE SULFATE [Concomitant]
     Indication: DIARRHOEA
     Dosage: 1-2-TABLET-PRN
     Route: 048
     Dates: start: 20130605
  47. CYCLOPENTOLATE [Concomitant]
     Indication: EYE IRRITATION
     Dosage: 1-%-PRN
     Route: 050
     Dates: start: 20130516
  48. FAMOTIDINE [Concomitant]
     Indication: GASTROOESOPHAGEAL REFLUX PROPHYLAXIS
     Dosage: 40 MG, UID/QD
     Route: 048
     Dates: start: 20130513
  49. INSULIN [Concomitant]
     Indication: DIABETES MELLITUS
     Dosage: SLIDING SCALE-UNITS-PRN
     Route: 058
     Dates: start: 20130606
  50. METFORMIN [Concomitant]
     Indication: DIABETES MELLITUS
     Dosage: 1000 MG, BID
     Route: 048
     Dates: start: 20130606

REACTIONS (1)
  - Graft versus host disease in intestine [Recovered/Resolved]
